FAERS Safety Report 6603359-X (Version None)
Quarter: 2010Q1

REPORT INFORMATION
  Report Type: 
  Country: None (occurrence: None)
  Receive Date: 20100226
  Receipt Date: 20090220
  Transmission Date: 20100710
  Serious: No
  Sender: FDA-Public Use
  Company Number: A0770467A

PATIENT
  Sex: Male

DRUGS (2)
  1. VALTREX [Suspect]
     Indication: HERPES VIRUS INFECTION
     Dosage: 500MGD PER DAY
     Route: 048
     Dates: start: 20080101
  2. PAIN MEDICATION [Concomitant]

REACTIONS (3)
  - HEADACHE [None]
  - MALAISE [None]
  - THERAPEUTIC RESPONSE UNEXPECTED [None]
